FAERS Safety Report 10987697 (Version 2)
Quarter: 2015Q2

REPORT INFORMATION
  Report Type: Spontaneous
  Country: US (occurrence: US)
  Receive Date: 20150404
  Receipt Date: 20150525
  Transmission Date: 20150821
  Serious: No
  Sender: FDA-Public Use
  Company Number: US-JNJFOC-20130510566

PATIENT

DRUGS (3)
  1. INFLIXIMAB, RECOMBINANT [Suspect]
     Active Substance: INFLIXIMAB
     Indication: CROHN^S DISEASE
     Route: 042
  2. THIOPURINE [Concomitant]
     Active Substance: UNSPECIFIED INGREDIENT
     Route: 065
  3. INFLIXIMAB, RECOMBINANT [Suspect]
     Active Substance: INFLIXIMAB
     Indication: CROHN^S DISEASE
     Dosage: THIRTY FIVE PERCENT OF LTUI REQUIRED DOSE ESCALATION TO 10 MG/KG
     Route: 042

REACTIONS (2)
  - Adverse event [Unknown]
  - Drug ineffective [Unknown]
